FAERS Safety Report 18315776 (Version 1)
Quarter: 2020Q3

REPORT INFORMATION
  Report Type: Other
  Country: CA (occurrence: CA)
  Receive Date: 20200926
  Receipt Date: 20200926
  Transmission Date: 20201103
  Serious: Yes (Disabling, Other)
  Sender: FDA-Public Use
  Company Number: CA-APOTEX-2020AP018440

PATIENT
  Age: 67 Year
  Sex: Female

DRUGS (1)
  1. ANASTROZOLE. [Suspect]
     Active Substance: ANASTROZOLE
     Indication: BREAST CANCER
     Dosage: 1 MILLIGRAM, QD
     Route: 048

REACTIONS (3)
  - Burning sensation [Unknown]
  - Arthralgia [Unknown]
  - Mobility decreased [Unknown]
